FAERS Safety Report 6544325-2 (Version None)
Quarter: 2010Q1

REPORT INFORMATION
  Report Type: 
  Country: None (occurrence: None)
  Receive Date: 20100120
  Receipt Date: 20100120
  Transmission Date: 20100710
  Serious: Yes (Life-Threatening)
  Sender: FDA-Public Use
  Company Number: None

PATIENT
  Age: 60 Year
  Sex: Male
  Weight: 97.5234 kg

DRUGS (1)
  1. TERAZOSIN HCL [Suspect]
     Indication: URINARY TRACT OBSTRUCTION
     Dosage: ONE TABLET AT BEDTIME
     Dates: start: 20090128, end: 20090128

REACTIONS (3)
  - HEADACHE [None]
  - IMMOBILE [None]
  - POISONING [None]
